FAERS Safety Report 9379935 (Version 2)
Quarter: 2013Q3

REPORT INFORMATION
  Report Type: Spontaneous
  Country: US (occurrence: US)
  Receive Date: 20130702
  Receipt Date: 20130702
  Transmission Date: 20140515
  Serious: Yes (Other)
  Sender: FDA-Public Use
  Company Number: US-PFIZER INC-2013187480

PATIENT
  Age: 18 Year
  Sex: Female

DRUGS (1)
  1. DEXTROMETHORPHAN HBR [Suspect]
     Indication: SUBSTANCE USE
     Dosage: 600-900 MG,UNK

REACTIONS (2)
  - Drug abuse [Unknown]
  - Toxicity to various agents [Unknown]
